FAERS Safety Report 8264198-X (Version None)
Quarter: 2012Q2

REPORT INFORMATION
  Report Type: 
  Country: None (occurrence: None)
  Receive Date: 20120403
  Receipt Date: 20120327
  Transmission Date: 20120825
  Serious: Yes (Other)
  Sender: FDA-Public Use
  Company Number: 2012-003006

PATIENT
  Age: 67 Year
  Sex: Female
  Weight: 78.5 kg

DRUGS (1)
  1. ASPIRIN [Suspect]
     Indication: HEADACHE
     Dosage: 2 DF, QD, BOTTLE COUNT 20S, ORAL
     Route: 048
     Dates: start: 20120109, end: 20120109

REACTIONS (6)
  - ORAL DISCOMFORT [None]
  - DYSPNOEA [None]
  - VOMITING [None]
  - CHOKING [None]
  - FOREIGN BODY [None]
  - THROAT IRRITATION [None]
